FAERS Safety Report 7684087-9 (Version None)
Quarter: 2011Q3

REPORT INFORMATION
  Report Type: 
  Country: None (occurrence: None)
  Receive Date: 20110815
  Receipt Date: 20110805
  Transmission Date: 20111222
  Serious: Yes (Hospitalization, Other)
  Sender: FDA-Public Use
  Company Number: US-BAYER-201038680NA

PATIENT
  Age: 34 Year
  Sex: Female
  Weight: 147.39 kg

DRUGS (19)
  1. FERROUS SULFATE TAB [Concomitant]
  2. FIORICET [Concomitant]
     Dosage: UNK UNK, PRN
  3. ALPRAZOLAM [Concomitant]
  4. OMEPRAZOLE [Concomitant]
  5. METHADONE HYDROCHLORIDE [Concomitant]
  6. IBUPROFEN [Concomitant]
  7. LEXAPRO [Concomitant]
  8. TYLENOL W/ CODEINE [Concomitant]
     Dosage: UNK UNK, PRN
  9. ROXICODONE [Concomitant]
  10. PRILOSEC [Concomitant]
  11. VICODIN [Concomitant]
     Dosage: UNK UNK, PRN
  12. HYDROCODONE [Concomitant]
  13. FOLIC ACID [Concomitant]
  14. XANAX [Concomitant]
     Dosage: UNK UNK, PRN
  15. YASMIN [Suspect]
     Dosage: UNK
     Route: 048
     Dates: start: 20060201, end: 20060901
  16. BUPROPION HCL [Concomitant]
  17. METROGEL [Concomitant]
  18. VYTORIN [Concomitant]
  19. WELLBUTRIN [Concomitant]

REACTIONS (5)
  - PULMONARY EMBOLISM [None]
  - CHOLECYSTITIS CHRONIC [None]
  - DEEP VEIN THROMBOSIS [None]
  - CHOLECYSTECTOMY [None]
  - CHOLELITHIASIS [None]
